FAERS Safety Report 23631262 (Version 1)
Quarter: 2024Q1

REPORT INFORMATION
  Report Type: Spontaneous
  Country: GB (occurrence: GB)
  Receive Date: 20240314
  Receipt Date: 20240314
  Transmission Date: 20240409
  Serious: Yes (Life-Threatening, Hospitalization, Other)
  Sender: FDA-Public Use
  Company Number: GB-SUN PHARMACEUTICAL INDUSTRIES LTD-2024RR-432798

PATIENT
  Age: 52 Year
  Sex: Female
  Weight: 105 kg

DRUGS (3)
  1. CODEINE [Suspect]
     Active Substance: CODEINE
     Indication: Product used for unknown indication
     Dosage: ONE TO BE TAKEN EVERY FOUR HOURS WHEN NECESSARY. NO MORE THAN 4 TABLETS IN 24 HOURS
     Route: 065
  2. ENOXAPARIN [Suspect]
     Active Substance: ENOXAPARIN
     Indication: Product used for unknown indication
     Dosage: UNK
     Route: 065
  3. IBUPROFEN [Concomitant]
     Active Substance: IBUPROFEN
     Indication: Product used for unknown indication
     Dosage: APPLY UP TO THREE TIMES A DAY TO AFFECTED AREA
     Route: 065
     Dates: start: 20231106, end: 20231219

REACTIONS (1)
  - Anaphylactic reaction [Recovered/Resolved]
